FAERS Safety Report 5355856-5 (Version None)
Quarter: 2007Q2

REPORT INFORMATION
  Report Type: 
  Country: None (occurrence: None)
  Receive Date: 20070611
  Receipt Date: 20070611
  Transmission Date: 20071010
  Serious: Yes (Hospitalization)
  Sender: FDA-Public Use
  Company Number: None

PATIENT
  Sex: Male
  Weight: 83.18 kg

DRUGS (4)
  1. CYTARABINE [Suspect]
     Dosage: 1400 MG
  2. DAUNORUBICIN HCL [Suspect]
     Dosage: 270 MG
  3. G-CSF (FILGRASTIM, AMGEN) [Suspect]
     Dosage: 2400 MG
  4. MYLOTARG [Suspect]
     Dosage: 12 MG

REACTIONS (3)
  - APLASIA [None]
  - CENTRAL LINE INFECTION [None]
  - STAPHYLOCOCCAL INFECTION [None]
